FAERS Safety Report 7396611-4 (Version None)
Quarter: 2011Q2

REPORT INFORMATION
  Report Type: 
  Country: None (occurrence: None)
  Receive Date: 20110406
  Receipt Date: 20110323
  Transmission Date: 20111010
  Serious: No
  Sender: FDA-Public Use
  Company Number: PHHY2009TW60867

PATIENT
  Sex: Female

DRUGS (2)
  1. GLEEVEC [Suspect]
     Indication: CHRONIC MYELOID LEUKAEMIA
     Dosage: LESS THAN 400 MG
     Route: 048
  2. GLEEVEC [Suspect]
     Dosage: 200 MG, UNK
     Route: 048

REACTIONS (3)
  - DECREASED APPETITE [None]
  - ASTHENIA [None]
  - HEADACHE [None]
